APPROVED DRUG PRODUCT: DRIZALMA SPRINKLE
Active Ingredient: DULOXETINE HYDROCHLORIDE
Strength: EQ 60MG BASE
Dosage Form/Route: CAPSULE, DELAYED REL PELLETS;ORAL
Application: N212516 | Product #004
Applicant: SUN PHARMACEUTICAL INDUSTRIES LTD
Approved: Jul 19, 2019 | RLD: Yes | RS: Yes | Type: RX

PATENTS:
Patent 10959982 | Expires: Apr 13, 2037
Patent 9839626 | Expires: Apr 13, 2037
Patent 10413525 | Expires: Apr 13, 2037
Patent 11202772 | Expires: Apr 13, 2037
Patent 12171742 | Expires: Apr 13, 2037